FAERS Safety Report 25098380 (Version 1)
Quarter: 2025Q1

REPORT INFORMATION
  Report Type: Spontaneous
  Country: IT (occurrence: IT)
  Receive Date: 20250320
  Receipt Date: 20250320
  Transmission Date: 20250409
  Serious: Yes (Other)
  Sender: ROCHE
  Company Number: IT-ROCHE-10000229839

PATIENT

DRUGS (7)
  1. GLOFITAMAB [Suspect]
     Active Substance: GLOFITAMAB
     Indication: Diffuse large B-cell lymphoma stage IV
     Route: 042
     Dates: start: 20230426
  2. GLOFITAMAB [Suspect]
     Active Substance: GLOFITAMAB
     Route: 042
     Dates: start: 20230305
  3. GLOFITAMAB [Suspect]
     Active Substance: GLOFITAMAB
     Route: 042
     Dates: start: 20230309
  4. OBINUTUZUMAB [Suspect]
     Active Substance: OBINUTUZUMAB
     Indication: Diffuse large B-cell lymphoma stage IV
     Route: 042
  5. DEXAMETHASONE [Concomitant]
     Active Substance: DEXAMETHASONE
  6. ACETAMINOPHEN [Concomitant]
     Active Substance: ACETAMINOPHEN
  7. CHLORPHENIRAMINE MALEATE [Concomitant]
     Active Substance: CHLORPHENIRAMINE MALEATE

REACTIONS (3)
  - Cytokine release syndrome [Unknown]
  - Hypotension [Unknown]
  - COVID-19 [Unknown]
